FAERS Safety Report 6404313-3 (Version None)
Quarter: 2009Q4

REPORT INFORMATION
  Report Type: 
  Country: None (occurrence: None)
  Receive Date: 20091016
  Receipt Date: 20091007
  Transmission Date: 20100525
  Serious: Yes (Congenital Anomaly)
  Sender: FDA-Public Use
  Company Number: B0598328A

PATIENT

DRUGS (2)
  1. DIGOXIN [Suspect]
     Indication: DRUG USE FOR UNKNOWN INDICATION
  2. FLECAINIDE ACETATE [Suspect]
     Indication: DRUG USE FOR UNKNOWN INDICATION

REACTIONS (14)
  - BLOOD BILIRUBIN INCREASED [None]
  - BLOOD LACTATE DEHYDROGENASE INCREASED [None]
  - CARDIAC MURMUR [None]
  - CARDIOMYOPATHY [None]
  - CHOLURIA [None]
  - GAMMA-GLUTAMYLTRANSFERASE INCREASED [None]
  - JAUNDICE [None]
  - MACROSOMIA [None]
  - NEONATAL CHOLESTASIS [None]
  - OEDEMA [None]
  - RESPIRATORY DEPRESSION [None]
  - TACHYCARDIA FOETAL [None]
  - TRICUSPID VALVE INCOMPETENCE [None]
  - WOLFF-PARKINSON-WHITE SYNDROME [None]
